FAERS Safety Report 6071609-7 (Version None)
Quarter: 2009Q1

REPORT INFORMATION
  Report Type: 
  Country: None (occurrence: None)
  Receive Date: 20090209
  Receipt Date: 20090209
  Transmission Date: 20090719
  Serious: No
  Sender: FDA-Public Use
  Company Number: None

PATIENT
  Age: 65 Year
  Sex: Female
  Weight: 60.782 kg

DRUGS (3)
  1. LAMISIL [Suspect]
     Indication: FUNGAL INFECTION
     Dosage: ONE DAILY BY MOUTH
     Route: 048
     Dates: start: 20081219, end: 20081231
  2. LAMISIL [Suspect]
     Indication: LOCALISED INFECTION
     Dosage: ONE DAILY BY MOUTH
     Route: 048
     Dates: start: 20081219, end: 20081231
  3. LAMISIL [Suspect]
     Indication: ONYCHOMYCOSIS
     Dosage: ONE DAILY BY MOUTH
     Route: 048
     Dates: start: 20081219, end: 20081231

REACTIONS (1)
  - HEADACHE [None]
